FAERS Safety Report 5116399-7 (Version None)
Quarter: 2006Q3

REPORT INFORMATION
  Report Type: 
  Country: None (occurrence: None)
  Receive Date: 20060928
  Receipt Date: 20060918
  Transmission Date: 20061208
  Serious: Yes (Disabling)
  Sender: FDA-Public Use
  Company Number: GB-JNJFOC-20060401811

PATIENT
  Sex: Female

DRUGS (1)
  1. DURAGESIC-50 [Suspect]
     Indication: PAIN
     Route: 062

REACTIONS (10)
  - ABASIA [None]
  - BREAKTHROUGH PAIN [None]
  - ERYTHEMA [None]
  - FLUSHING [None]
  - HOT FLUSH [None]
  - HYPERHIDROSIS [None]
  - MICTURITION URGENCY [None]
  - MUSCLE SPASMS [None]
  - NEURALGIA [None]
  - THERAPEUTIC RESPONSE DECREASED [None]
